FAERS Safety Report 20185426 (Version 1)
Quarter: 2021Q4

REPORT INFORMATION
  Report Type: Spontaneous
  Country: US (occurrence: None)
  Receive Date: 20211215
  Receipt Date: 20211215
  Transmission Date: 20220303
  Serious: Yes (Other)
  Sender: FDA-Public Use
  Company Number: US-Hikma Pharmaceuticals USA Inc.-US-H14001-21-05288

PATIENT
  Sex: Female

DRUGS (1)
  1. MIDAZOLAM [Suspect]
     Active Substance: MIDAZOLAM
     Indication: Sedative therapy
     Dosage: UNKNOWN
     Route: 065

REACTIONS (3)
  - Syncope [Recovering/Resolving]
  - Dehydration [Recovering/Resolving]
  - Blood pressure decreased [Recovering/Resolving]
